FAERS Safety Report 11368700 (Version 1)
Quarter: 2015Q3

REPORT INFORMATION
  Report Type: Report from Study
  Country: US (occurrence: US)
  Receive Date: 20150812
  Receipt Date: 20150812
  Transmission Date: 20151125
  Serious: Yes (Other)
  Sender: FDA-Public Use
  Company Number: PHEH2015US002271

PATIENT
  Age: 60 Year
  Sex: Female
  Weight: 104.3 kg

DRUGS (3)
  1. AMANTADINE [Concomitant]
     Active Substance: AMANTADINE
     Indication: PRODUCT USED FOR UNKNOWN INDICATION
     Dosage: 1 DF, QD
     Route: 048
     Dates: start: 20141125
  2. GABAPENTIN. [Concomitant]
     Active Substance: GABAPENTIN
     Indication: PRODUCT USED FOR UNKNOWN INDICATION
     Dosage: 3 DF, QD
     Route: 048
     Dates: start: 20140825
  3. GILENYA [Suspect]
     Active Substance: FINGOLIMOD HYDROCHLORIDE
     Indication: MULTIPLE SCLEROSIS
     Dosage: 0.5 MG, QD
     Route: 048
     Dates: start: 20150105

REACTIONS (11)
  - Balance disorder [Unknown]
  - Confusional state [Recovering/Resolving]
  - Depressed mood [Recovering/Resolving]
  - Fatigue [Recovering/Resolving]
  - White blood cell count decreased [Recovering/Resolving]
  - Anxiety [Unknown]
  - Insomnia [Recovered/Resolved]
  - Emotional disorder [Not Recovered/Not Resolved]
  - Hypoaesthesia [Unknown]
  - Arthritis [Not Recovered/Not Resolved]
  - Granulocyte count increased [Unknown]

NARRATIVE: CASE EVENT DATE: 20150130
